FAERS Safety Report 8898462 (Version 1)
Quarter: 2012Q4

REPORT INFORMATION
  Report Type: 
  Country: US (occurrence: US)
  Receive Date: 20121109
  Receipt Date: 20121109
  Transmission Date: 20130627
  Serious: No
  Sender: FDA-Public Use
  Company Number: US-PFIZER INC-2012280337

PATIENT
  Age: 44 Year
  Sex: Female
  Weight: 63.49 kg

DRUGS (3)
  1. LYRICA [Suspect]
     Indication: FIBROMYALGIA
     Dosage: 200 mg, 3x/day
     Route: 048
  2. LYRICA [Suspect]
     Dosage: UNK
     Dates: start: 2012
  3. OXYCODONE [Concomitant]
     Dosage: UNK

REACTIONS (2)
  - Pain [Unknown]
  - Neck pain [Unknown]
